FAERS Safety Report 10276973 (Version 2)
Quarter: 2014Q3

REPORT INFORMATION
  Report Type: Spontaneous
  Country: CA (occurrence: CA)
  Receive Date: 20140703
  Receipt Date: 20140722
  Transmission Date: 20150326
  Serious: Yes (Life-Threatening, Hospitalization, Other)
  Sender: FDA-Public Use
  Company Number: CA-BRISTOL-MYERS SQUIBB COMPANY-21162946

PATIENT
  Age: 83 Year
  Sex: Female
  Weight: 75.18 kg

DRUGS (8)
  1. METFORMIN HCL TABS 500MG [Concomitant]
     Active Substance: METFORMIN HYDROCHLORIDE
     Indication: DIABETES MELLITUS
     Dosage: 1DF:1 TABS?TAKE 1 TABLET EACH MORNING AND 2 TABS EVENING
     Route: 048
     Dates: start: 200701
  2. APO-METOPROLOL [Concomitant]
     Indication: CORONARY ARTERY DISEASE
     Dosage: 1DF: 1/4TH OF 50 MG TABS
     Route: 048
     Dates: start: 200609
  3. CRESTOR [Concomitant]
     Active Substance: ROSUVASTATIN CALCIUM
     Indication: HYPERTENSION
     Dosage: 1DF:1 10MG TABS
  4. COVERSYL [Concomitant]
     Active Substance: PERINDOPRIL
     Dosage: 1DF: 1 2 MG TABS
     Route: 048
  5. ELIQUIS [Suspect]
     Active Substance: APIXABAN
     Indication: ATRIAL FIBRILLATION
     Dosage: DOSE REDUCED TO 2.5MG?TABS
  6. APO-METOPROLOL [Concomitant]
     Indication: ATRIAL FIBRILLATION
     Dosage: 1DF: 1/4TH OF 50 MG TABS
     Route: 048
     Dates: start: 200609
  7. PANTOPRAZOLE SODIUM [Concomitant]
     Active Substance: PANTOPRAZOLE SODIUM
     Indication: ULCER
     Dosage: 1DF:1 40 MG TABS?APO PANTOPRAZOLE
     Route: 048
  8. FERROUS GLUCONATE [Concomitant]
     Active Substance: FERROUS GLUCONATE
     Dosage: 1DF: 1 TABS OF 500 MG APO FERRUS GLUCONTE
     Route: 048

REACTIONS (2)
  - Gastrointestinal haemorrhage [Unknown]
  - Gastric ulcer [Recovered/Resolved]

NARRATIVE: CASE EVENT DATE: 20140401
